FAERS Safety Report 6487701-9 (Version None)
Quarter: 2009Q4

REPORT INFORMATION
  Report Type: 
  Country: None (occurrence: None)
  Receive Date: 20091210
  Receipt Date: 20090824
  Transmission Date: 20100525
  Serious: No
  Sender: FDA-Public Use
  Company Number: US-AMGEN-KDL361479

PATIENT
  Sex: Female
  Weight: 89 kg

DRUGS (2)
  1. ENBREL [Suspect]
     Indication: JUVENILE ARTHRITIS
     Route: 058
     Dates: start: 20031201
  2. ENBREL [Suspect]
     Indication: RHEUMATOID ARTHRITIS

REACTIONS (5)
  - LEUKOCYTOSIS [None]
  - ORAL FUNGAL INFECTION [None]
  - RASH ERYTHEMATOUS [None]
  - RASH PRURITIC [None]
  - VULVOVAGINAL MYCOTIC INFECTION [None]
